FAERS Safety Report 9987316 (Version 1)
Quarter: 2014Q1

REPORT INFORMATION
  Report Type: Report from Study
  Country: US (occurrence: US)
  Receive Date: 20140307
  Receipt Date: 20140307
  Transmission Date: 20141002
  Serious: Yes (Other)
  Sender: FDA-Public Use
  Company Number: US-GILEAD-2014-0095783

PATIENT
  Sex: Male

DRUGS (1)
  1. RANOLAZINE [Suspect]
     Indication: PRODUCT USED FOR UNKNOWN INDICATION
     Dosage: 500 MG, UNK
     Route: 065

REACTIONS (7)
  - Renal failure chronic [Unknown]
  - Cardioversion [Unknown]
  - Cardiac failure congestive [Unknown]
  - Sleep apnoea syndrome [Unknown]
  - Lung disorder [Unknown]
  - Hypertension [Unknown]
  - Arthritis [Unknown]
